FAERS Safety Report 4383563-4 (Version None)
Quarter: 2004Q2

REPORT INFORMATION
  Report Type: 
  Country: None (occurrence: None)
  Receive Date: 20040614
  Receipt Date: 20030506
  Transmission Date: 20050107
  Serious: Yes (Disabling)
  Sender: FDA-Public Use
  Company Number: 2003156291US

PATIENT
  Sex: Male
  Weight: 90.7 kg

DRUGS (4)
  1. ZYVOX [Suspect]
     Indication: STAPHYLOCOCCAL INFECTION
     Dosage: 600 MG, BID, ORAL
     Route: 048
     Dates: start: 20021001, end: 20030415
  2. ALLOPURINOL [Concomitant]
  3. ADVIL [Concomitant]
  4. VITAMIN SUPPLEMENTS WITH IRON AND B12 [Concomitant]

REACTIONS (1)
  - NEUROPATHY PERIPHERAL [None]
